FAERS Safety Report 18805000 (Version 2)
Quarter: 2023Q1

REPORT INFORMATION
  Report Type: Report from Study
  Country: US (occurrence: US)
  Receive Date: 20210129
  Receipt Date: 20230309
  Transmission Date: 20230417
  Serious: Yes (Death, Other)
  Sender: FDA-Public Use
  Company Number: US-ACADIA PHARMACEUTICALS INC.-ACA-2021-PIM-000203

PATIENT
  Age: 76 Year
  Sex: Male

DRUGS (1)
  1. NUPLAZID [Suspect]
     Active Substance: PIMAVANSERIN TARTRATE
     Indication: Parkinson^s disease
     Dosage: 34 MILLIGRAM, QD
     Route: 048
     Dates: start: 20170519

REACTIONS (4)
  - Death [Fatal]
  - Vomiting [Unknown]
  - Heart rate decreased [Unknown]
  - Weight decreased [Unknown]

NARRATIVE: CASE EVENT DATE: 20210108
